FAERS Safety Report 6462779-7 (Version None)
Quarter: 2009Q4

REPORT INFORMATION
  Report Type: 
  Country: None (occurrence: None)
  Receive Date: 20091130
  Receipt Date: 20091016
  Transmission Date: 20100525
  Serious: No
  Sender: FDA-Public Use
  Company Number: US-AMGEN-KDL369693

PATIENT
  Sex: Female

DRUGS (13)
  1. ENBREL [Suspect]
     Indication: DRUG USE FOR UNKNOWN INDICATION
     Route: 058
  2. FOSAMAX [Concomitant]
  3. DYAZIDE [Concomitant]
  4. PLAQUENIL [Concomitant]
  5. PREMARIN [Concomitant]
  6. PREDNISONE [Concomitant]
  7. BUPROPION HCL [Concomitant]
  8. FOLIC ACID [Concomitant]
  9. VITAMIN E [Concomitant]
  10. LEVOTHYROXINE SODIUM [Concomitant]
  11. CALCIUM WITH VITAMIN D [Concomitant]
  12. FISH OIL [Concomitant]
  13. POTASSIUM [Concomitant]

REACTIONS (1)
  - PRURITUS [None]
